FAERS Safety Report 13896927 (Version 1)
Quarter: 2017Q3

REPORT INFORMATION
  Report Type: Spontaneous
  Country: US (occurrence: US)
  Receive Date: 20170822
  Receipt Date: 20170822
  Transmission Date: 20171127
  Serious: Yes (Disabling, Other)
  Sender: FDA-Public Use
  Company Number: None

PATIENT
  Age: 63 Year
  Sex: Female
  Weight: 76.05 kg

DRUGS (11)
  1. BUPROPION. [Concomitant]
     Active Substance: BUPROPION
  2. FISH OIL [Concomitant]
     Active Substance: FISH OIL
  3. CALCIUM [Concomitant]
     Active Substance: CALCIUM
  4. DAILY VITAMIN [Concomitant]
     Active Substance: VITAMINS
  5. NAPROSYN [Suspect]
     Active Substance: NAPROXEN
     Indication: NEURALGIA
     Dosage: ?          QUANTITY:1 TABLET(S);?
     Route: 048
  6. BUPROPION. [Concomitant]
     Active Substance: BUPROPION
  7. LEVOTHYROXINE. [Concomitant]
     Active Substance: LEVOTHYROXINE
  8. NALTREXONE [Concomitant]
     Active Substance: NALTREXONE
  9. NAPROSYN [Suspect]
     Active Substance: NAPROXEN
     Indication: MYALGIA
     Dosage: ?          QUANTITY:1 TABLET(S);?
     Route: 048
  10. BABY ASPIRIN [Concomitant]
     Active Substance: ASPIRIN
  11. ESCITALOPRAM [Concomitant]
     Active Substance: ESCITALOPRAM OXALATE

REACTIONS (11)
  - Sleep talking [None]
  - Middle insomnia [None]
  - Hypomania [None]
  - Neuralgia [None]
  - Depressed mood [None]
  - Abnormal dreams [None]
  - Depression [None]
  - Insomnia [None]
  - Affective disorder [None]
  - Pain [None]
  - Somnolence [None]

NARRATIVE: CASE EVENT DATE: 20170720
